FAERS Safety Report 14670036 (Version 2)
Quarter: 2018Q2

REPORT INFORMATION
  Report Type: Spontaneous
  Country: US (occurrence: US)
  Receive Date: 20180322
  Receipt Date: 20180425
  Transmission Date: 20180711
  Serious: Yes (Other)
  Sender: FDA-Public Use
  Company Number: US-KOWA-18US000601

PATIENT

DRUGS (8)
  1. COQ 10 [Concomitant]
     Active Substance: UBIDECARENONE
     Indication: BLOOD CHOLESTEROL
     Dosage: UNK
  2. ASA [Concomitant]
     Active Substance: ASPIRIN
     Indication: PRODUCT USED FOR UNKNOWN INDICATION
     Dosage: UNK
  3. BYSTOLIC [Concomitant]
     Active Substance: NEBIVOLOL HYDROCHLORIDE
     Indication: BLOOD PRESSURE MEASUREMENT
     Dosage: UNK
     Dates: start: 2010
  4. SYNTHROID [Concomitant]
     Active Substance: LEVOTHYROXINE SODIUM
     Indication: HYPOTHYROIDISM
     Dosage: UNK
     Dates: start: 1978
  5. PLAVIX [Concomitant]
     Active Substance: CLOPIDOGREL BISULFATE
     Indication: ANTICOAGULANT THERAPY
     Dosage: UNK
     Dates: start: 2008, end: 2015
  6. BENICAR [Concomitant]
     Active Substance: OLMESARTAN MEDOXOMIL
     Indication: CARDIAC REHABILITATION THERAPY
  7. BENICAR [Concomitant]
     Active Substance: OLMESARTAN MEDOXOMIL
     Indication: BLOOD PRESSURE MEASUREMENT
     Dosage: UNK
     Dates: start: 2010
  8. LIVALO [Suspect]
     Active Substance: PITAVASTATIN CALCIUM
     Indication: BLOOD CHOLESTEROL INCREASED
     Dosage: 2 MG, QD

REACTIONS (4)
  - Shoulder operation [Recovered/Resolved]
  - Abdominal hernia [Recovered/Resolved]
  - Umbilical hernia [Recovered/Resolved]
  - Elbow operation [Unknown]

NARRATIVE: CASE EVENT DATE: 2011
